FAERS Safety Report 14384078 (Version 17)
Quarter: 2018Q3

REPORT INFORMATION
  Report Type: Spontaneous
  Country: US (occurrence: US)
  Receive Date: 20180115
  Receipt Date: 20180912
  Transmission Date: 20181010
  Serious: Yes (Other)
  Sender: FDA-Public Use
  Company Number: US-PFIZER INC-2018013689

PATIENT
  Age: 64 Year
  Sex: Male
  Weight: 72.56 kg

DRUGS (41)
  1. OYSTER SHELL CALCIUM [Concomitant]
     Active Substance: CALCIUM
     Indication: BONE DISORDER
     Dosage: 1 DF, UNK (AT NIGHT)
     Route: 048
  2. GABAPENTIN. [Concomitant]
     Active Substance: GABAPENTIN
     Indication: PAIN IN EXTREMITY
     Dosage: 2400 MG, UNK (^TWO 1200 MG TABLETS^)
  3. KLONOPIN [Concomitant]
     Active Substance: CLONAZEPAM
     Dosage: 0.5 MG, 3X/DAY
     Route: 048
  4. KLONOPIN [Concomitant]
     Active Substance: CLONAZEPAM
     Dosage: 2 MG, DAILY (0.5MG UP TO 4 DAILY)
  5. CHANTIX [Suspect]
     Active Substance: VARENICLINE TARTRATE
     Dosage: 0.5 MG, TWICE DAILY
     Route: 048
     Dates: start: 20180104
  6. CHANTIX [Suspect]
     Active Substance: VARENICLINE TARTRATE
     Dosage: 0.5 MG, 2X/DAY
     Route: 048
  7. CHANTIX [Suspect]
     Active Substance: VARENICLINE TARTRATE
     Indication: SMOKING CESSATION THERAPY
     Dosage: 1 MG, 2X/DAY
     Route: 048
     Dates: start: 20171229
  8. CHANTIX [Suspect]
     Active Substance: VARENICLINE TARTRATE
     Dosage: 1 MG, 2X/DAY
     Route: 048
     Dates: start: 20180124
  9. CHANTIX [Suspect]
     Active Substance: VARENICLINE TARTRATE
     Dosage: 1 MG, 2X/DAY (1 MG TABLET IN THE MORNING BY MOUTH AND 1 MG TABLET WITH HIS MAIN MEAL BY MOUTH)
     Route: 048
  10. CHANTIX [Suspect]
     Active Substance: VARENICLINE TARTRATE
     Dosage: 10 MG, 2X/DAY
  11. FISH OIL [Concomitant]
     Active Substance: FISH OIL
     Indication: ATTENTION DEFICIT/HYPERACTIVITY DISORDER
     Dosage: 1000 MG, UNK
     Route: 048
  12. FISH OIL [Concomitant]
     Active Substance: FISH OIL
     Dosage: 1 DF, 1X/DAY(AT NIGHT)
     Route: 048
  13. HYDROCODEINE [Concomitant]
     Active Substance: DIHYDROCODEINE PHOSPHATE
     Indication: PAIN
     Dosage: 1 DF, 3X/DAY, (10/325MG TABLET THREE TIMES DAILY BY MOUTH)
     Route: 048
     Dates: start: 201802
  14. VENTOLIN HFA [Concomitant]
     Active Substance: ALBUTEROL SULFATE
     Indication: WHEEZING
  15. ACETAMINOPHEN W/HYDROCODONE [Concomitant]
     Active Substance: ACETAMINOPHEN\HYDROCODONE
     Indication: PAIN
     Dosage: UNK , (10/325)
  16. ONE?A?DAY NOS [Concomitant]
     Active Substance: MINERALS\VITAMINS
     Dosage: UNK, WHEN HE EATS
  17. ASPIRIN. [Concomitant]
     Active Substance: ASPIRIN
     Indication: CARDIAC DISORDER
     Dosage: 81 MG, 1X/DAY(IN THE MORNING)
     Route: 048
  18. GABAPENTIN. [Concomitant]
     Active Substance: GABAPENTIN
     Indication: NEURALGIA
     Dosage: 900 MG, 1X/DAY (AT NIGHT)
     Dates: start: 20170811
  19. KLONOPIN [Concomitant]
     Active Substance: CLONAZEPAM
     Indication: ANXIETY
     Dosage: UNK, AS NEEDED [QD PRN]
     Dates: start: 20170509
  20. FLUTICASONE PROPIONATE. [Concomitant]
     Active Substance: FLUTICASONE PROPIONATE
     Indication: INFLUENZA
     Dosage: 50 UG, 2X/DAY (50MCG 1 SPRAYS INTO EACH NOSTRIL)
     Route: 045
  21. ACETAMINOPHEN W/HYDROCODONE [Concomitant]
     Active Substance: ACETAMINOPHEN\HYDROCODONE
     Dosage: UNK, 5/325
  22. MUPIROCIN. [Concomitant]
     Active Substance: MUPIROCIN
     Indication: INJURY
     Dosage: UNK UNK, AS NEEDED (TAKE IT IF YOU CUT OR INJURE YOURSELF)
  23. CHANTIX [Suspect]
     Active Substance: VARENICLINE TARTRATE
     Dosage: 1 MG, 2X/DAY
     Route: 048
  24. CHANTIX [Suspect]
     Active Substance: VARENICLINE TARTRATE
     Dosage: 1 MG, 2X/DAY (1 IN MORNING BY MOUTH, 1MG WITH FOOD OR ENSURE LATER WITH DINNER)
     Route: 048
  25. FISH OIL [Concomitant]
     Active Substance: FISH OIL
     Dosage: 100 MG (WHEN HE EATS)
  26. VENTOLIN HFA [Concomitant]
     Active Substance: ALBUTEROL SULFATE
     Indication: COUGH
     Dosage: UNK, UP TO 3?4 TIMES A DAY
  27. GABAPENTIN. [Concomitant]
     Active Substance: GABAPENTIN
     Indication: EPILEPSY
     Dosage: 600 MG, 1X/DAY
  28. KLONOPIN [Concomitant]
     Active Substance: CLONAZEPAM
     Dosage: UNK, DAILY
     Dates: start: 20170203, end: 20180227
  29. KLONOPIN [Concomitant]
     Active Substance: CLONAZEPAM
     Dosage: 5 UNK, UNK
  30. FISH OIL [Concomitant]
     Active Substance: FISH OIL
     Dosage: 100 MG, 1X/DAY (AT DINNER TIME)
  31. KLONOPIN [Concomitant]
     Active Substance: CLONAZEPAM
     Indication: PSYCHOMOTOR HYPERACTIVITY
     Dosage: 1 MG, UNK
     Route: 048
  32. KLONOPIN [Concomitant]
     Active Substance: CLONAZEPAM
     Indication: NERVOUSNESS
     Dosage: 0.5 MG, AS NEEDED
  33. KLONOPIN [Concomitant]
     Active Substance: CLONAZEPAM
     Dosage: 0.5 MG (WANTS TO TAKE 4 AND WAS ONLY GIVEN 2)
  34. TAMSULOSIN HCL [Concomitant]
     Active Substance: TAMSULOSIN HYDROCHLORIDE
     Indication: PROSTATOMEGALY
     Dosage: 0.4 MG, UNK
  35. BIOTENE NOS [Suspect]
     Active Substance: CETYLPYRIDINIUM CHLORIDE OR SODIUM FLUORIDE OR SODIUM MONOFLUOROPHOSPHATE OR GLUCOSE OXIDASE\LACTOFERRIN\LACTOPEROXIDASE BOVINE\LYSOZYME
  36. OYSTER SHELL CALCIUM [Concomitant]
     Active Substance: CALCIUM
     Indication: CALCIUM DEFICIENCY
     Dosage: 500 MG, 1X/DAY (AT NIGHT)
     Route: 048
  37. GABAPENTIN. [Concomitant]
     Active Substance: GABAPENTIN
     Indication: LUMBAR RADICULOPATHY
     Dosage: UNK, DAILY
     Dates: start: 20151201
  38. FLOMAX [Concomitant]
     Active Substance: TAMSULOSIN HYDROCHLORIDE
     Indication: PROSTATOMEGALY
     Dosage: 100 MG, UNK (AT NIGHT; SOMETIMES TAKES IT AND SOMETIMES HE DOES NOT)
  39. ALBUTEROL. [Concomitant]
     Active Substance: ALBUTEROL
     Indication: CHRONIC OBSTRUCTIVE PULMONARY DISEASE
     Dosage: UNK, AS NEEDED [Q4 PRN]
     Dates: start: 20160712
  40. OYSTER SHELL [Concomitant]
     Active Substance: OSTREA EDULIS SHELL
     Dosage: 500 MG (WHEN HE EATS)
  41. NORCO [Concomitant]
     Active Substance: ACETAMINOPHEN\HYDROCODONE BITARTRATE

REACTIONS (33)
  - Fall [Unknown]
  - Drug ineffective [Unknown]
  - Abnormal dreams [Recovered/Resolved]
  - Affective disorder [Recovered/Resolved]
  - Vomiting [Unknown]
  - Diarrhoea [Unknown]
  - Secretion discharge [Not Recovered/Not Resolved]
  - Pain in extremity [Unknown]
  - Malaise [Unknown]
  - Abdominal distension [Unknown]
  - Nausea [Recovered/Resolved]
  - Pain [Unknown]
  - Nerve compression [Unknown]
  - Limb injury [Unknown]
  - Intentional product misuse [Unknown]
  - Overdose [Unknown]
  - Constipation [Recovering/Resolving]
  - Dysgeusia [Recovered/Resolved]
  - Crying [Recovered/Resolved]
  - Decreased appetite [Unknown]
  - Sleep disorder [Unknown]
  - Psychomotor hyperactivity [Not Recovered/Not Resolved]
  - Nightmare [Recovered/Resolved]
  - Wheezing [Recovering/Resolving]
  - Weight decreased [Not Recovered/Not Resolved]
  - Muscle tightness [Unknown]
  - Joint dislocation [Unknown]
  - Weight increased [Unknown]
  - Eyelid injury [Unknown]
  - Condition aggravated [Not Recovered/Not Resolved]
  - Cough [Unknown]
  - Accident [Unknown]
  - Hypoaesthesia [Unknown]

NARRATIVE: CASE EVENT DATE: 201801
